FAERS Safety Report 13734163 (Version 1)
Quarter: 2017Q3

REPORT INFORMATION
  Report Type: Report from Study
  Country: US (occurrence: US)
  Receive Date: 20170708
  Receipt Date: 20170708
  Transmission Date: 20171127
  Serious: Yes (Hospitalization, Other)
  Sender: FDA-Public Use
  Company Number: US-AMGEN-USASL2017101059

PATIENT
  Sex: Female

DRUGS (1)
  1. REPATHA [Suspect]
     Active Substance: EVOLOCUMAB
     Indication: PRODUCT USED FOR UNKNOWN INDICATION
     Dosage: UNK
     Route: 065

REACTIONS (4)
  - Asthenia [Unknown]
  - Surgery [Unknown]
  - Rehabilitation therapy [Unknown]
  - Pain in extremity [Unknown]

NARRATIVE: CASE EVENT DATE: 2017
